FAERS Safety Report 9095436 (Version 1)
Quarter: 2013Q1

REPORT INFORMATION
  Report Type: Spontaneous
  Country: US (occurrence: US)
  Receive Date: 20130219
  Receipt Date: 20130219
  Transmission Date: 20140127
  Serious: Yes (Other)
  Sender: FDA-Public Use
  Company Number: PHHY2013US015387

PATIENT
  Age: 64 Year
  Sex: Female

DRUGS (4)
  1. ASCRIPTIN BUFFERED REG STRENGTH TABLETS [Suspect]
     Indication: ARTHRITIS
     Dosage: 2 DF, PRN
     Route: 048
     Dates: start: 1983, end: 201211
  2. ASCRIPTIN BUFFERED REG STRENGTH TABLETS [Suspect]
     Indication: HEADACHE
  3. ASCRIPTIN BUFFERED MAX STRENGTH CAPLETS [Suspect]
     Indication: ARTHRITIS
     Dosage: 1 DF, PRN
     Route: 048
     Dates: end: 201211
  4. ASCRIPTIN BUFFERED MAX STRENGTH CAPLETS [Suspect]
     Indication: HEADACHE

REACTIONS (11)
  - Joint injury [Recovered/Resolved]
  - Fall [Recovered/Resolved]
  - Cyst [Recovered/Resolved]
  - Meniscus injury [Recovered/Resolved]
  - Hip fracture [Recovered/Resolved]
  - Ulcer [Not Recovered/Not Resolved]
  - Hypersensitivity [Recovered/Resolved]
  - Feeling hot [Recovered/Resolved]
  - Urticaria [Recovered/Resolved]
  - Dyspnoea [Recovered/Resolved]
  - Incorrect drug administration duration [Unknown]
